FAERS Safety Report 21530435 (Version 1)
Quarter: 2022Q4

REPORT INFORMATION
  Report Type: Spontaneous
  Country: JO (occurrence: None)
  Receive Date: 20221028
  Receipt Date: 20221028
  Transmission Date: 20230113
  Serious: Yes (Disabling)
  Sender: FDA-Public Use
  Company Number: None

PATIENT
  Age: 34 Year
  Sex: Female
  Weight: 110 kg

DRUGS (1)
  1. SAXENDA [Suspect]
     Active Substance: LIRAGLUTIDE
     Indication: Obesity
     Dosage: OTHER QUANTITY : 3 INJECTION(S);?FREQUENCY : DAILY;?
     Route: 058
     Dates: start: 20221018, end: 20221028

REACTIONS (3)
  - Abdominal pain upper [None]
  - Dyspnoea [None]
  - Dysphagia [None]

NARRATIVE: CASE EVENT DATE: 20221028
